FAERS Safety Report 4630496-1 (Version None)
Quarter: 2005Q2

REPORT INFORMATION
  Report Type: 
  Country: None (occurrence: None)
  Receive Date: 20050405
  Receipt Date: 20050405
  Transmission Date: 20051028
  Serious: Yes (Hospitalization)
  Sender: FDA-Public Use
  Company Number: None

PATIENT
  Age: 55 Year
  Sex: Male
  Weight: 139.7 kg

DRUGS (20)
  1. KETOCONAZOLE [Suspect]
     Indication: PROSTATE CANCER
     Dosage: 400MG PO TID
     Route: 048
     Dates: start: 20041007
  2. HYDROCORTISONE [Suspect]
     Dosage: 10 MG PO BID
     Route: 048
     Dates: start: 20041007
  3. TENORMIN [Concomitant]
  4. LASIX [Concomitant]
  5. PRAVACHOL [Concomitant]
  6. BACTHIM [Concomitant]
  7. PLAVIX [Concomitant]
  8. MIRALAX [Concomitant]
  9. CORTEF [Concomitant]
  10. CELEBREX [Concomitant]
  11. ZOMETA [Concomitant]
  12. PHNERGAN [Concomitant]
  13. ACTOS [Concomitant]
  14. POTASSIUM CHLORIDE [Concomitant]
  15. FLOMAX [Concomitant]
  16. OXYCONTIN [Concomitant]
  17. SENOKOT [Concomitant]
  18. METAMUCIL-2 [Concomitant]
  19. GLUCOVANCE [Concomitant]
  20. LUPRON [Concomitant]

REACTIONS (2)
  - DYSPNOEA EXERTIONAL [None]
  - PULMONARY EMBOLISM [None]
